FAERS Safety Report 7084755-6 (Version None)
Quarter: 2010Q4

REPORT INFORMATION
  Report Type: 
  Country: None (occurrence: None)
  Receive Date: 20101104
  Receipt Date: 20101022
  Transmission Date: 20110411
  Serious: Yes (Death)
  Sender: FDA-Public Use
  Company Number: US-AMGEN-USASP2010001185

PATIENT

DRUGS (3)
  1. NPLATE [Suspect]
     Dates: start: 20091008
  2. IMMU-G [Concomitant]
     Dosage: UNK
     Route: 042
     Dates: start: 20091006, end: 20091008
  3. CORTICOSTEROIDS [Concomitant]
     Dosage: UNK
     Dates: start: 20090825

REACTIONS (1)
  - DEATH [None]
